FAERS Safety Report 4961005-5 (Version None)
Quarter: 2006Q1

REPORT INFORMATION
  Report Type: 
  Country: None (occurrence: None)
  Receive Date: 20060328
  Receipt Date: 20060317
  Transmission Date: 20060701
  Serious: Yes (Hospitalization, Disabling)
  Sender: FDA-Public Use
  Company Number: CHWYE479817MAR06

PATIENT
  Sex: Male

DRUGS (1)
  1. RAPAMUNE [Suspect]
     Indication: PROPHYLAXIS AGAINST TRANSPLANT REJECTION
     Dates: start: 20050601

REACTIONS (5)
  - DEHYDRATION [None]
  - DIARRHOEA [None]
  - DISTURBANCE IN ATTENTION [None]
  - HYPOTENSION [None]
  - VOMITING [None]
